FAERS Safety Report 8314625-4 (Version None)
Quarter: 2012Q2

REPORT INFORMATION
  Report Type: 
  Country: None (occurrence: None)
  Receive Date: 20120426
  Receipt Date: 20120420
  Transmission Date: 20120825
  Serious: Yes (Hospitalization)
  Sender: FDA-Public Use
  Company Number: GB-ROCHE-1062047

PATIENT
  Sex: Female
  Weight: 77 kg

DRUGS (1)
  1. MABTHERA [Suspect]
     Indication: PRODUCT USED FOR UNKNOWN INDICATION
     Dosage: LAST DATE PRIOR TO SAE:21/OCT/2010
     Route: 065
     Dates: start: 20090602

REACTIONS (1)
  - OSTEOARTHRITIS [None]
